FAERS Safety Report 9773098 (Version 2)
Quarter: 2014Q1

REPORT INFORMATION
  Report Type: Spontaneous
  Country: GB (occurrence: GB)
  Receive Date: 20131219
  Receipt Date: 20140219
  Transmission Date: 20141002
  Serious: Yes (Hospitalization, Other)
  Sender: FDA-Public Use
  Company Number: PHHY2013GB146094

PATIENT
  Age: 65 Year
  Sex: Male

DRUGS (6)
  1. AMIODARONE [Suspect]
     Indication: ATRIAL FIBRILLATION
     Dosage: 200 MG, UNK
     Dates: end: 20131129
  2. YERVOY [Suspect]
     Indication: MALIGNANT MELANOMA
     Dosage: 3 MG/KG, COMPLETED 4 CYCLES
     Route: 042
     Dates: start: 20130823, end: 20131107
  3. YERVOY [Suspect]
     Indication: METASTATIC MALIGNANT MELANOMA
  4. RIVAROXABAN [Concomitant]
  5. CANDESARTAN [Concomitant]
     Indication: HYPERTENSION
     Dosage: 8 MG, UNK
  6. EZETIMIBE [Concomitant]
     Indication: HYPERCHOLESTEROLAEMIA
     Dosage: 10 MG, UNK

REACTIONS (3)
  - Hypopituitarism [Recovered/Resolved]
  - Muscular weakness [Recovered/Resolved]
  - Peripheral sensory neuropathy [Recovered/Resolved]
